FAERS Safety Report 7400188-4 (Version None)
Quarter: 2011Q2

REPORT INFORMATION
  Report Type: 
  Country: None (occurrence: None)
  Receive Date: 20110405
  Receipt Date: 20110405
  Transmission Date: 20111010
  Serious: No
  Sender: FDA-Public Use
  Company Number: None

PATIENT
  Age: 89 Year
  Sex: Male
  Weight: 66.2 kg

DRUGS (9)
  1. METOPROLOL TARTRATE [Concomitant]
  2. SIMVASTATIN [Concomitant]
  3. LUTEIN [Concomitant]
  4. PENTOXIFYLLINE [Suspect]
     Indication: PERIPHERAL VASCULAR DISORDER
     Dosage: 400MG TID PO
     Route: 048
  5. HCTZ 25/TRIAMTERENE [Concomitant]
  6. OMEPRAZOLE [Concomitant]
  7. GABAPENTIN [Concomitant]
  8. ASPIRIN [Concomitant]
  9. MULTI-VITAMIN [Concomitant]

REACTIONS (2)
  - PAIN IN EXTREMITY [None]
  - SENSATION OF HEAVINESS [None]
